FAERS Safety Report 4565759-1 (Version None)
Quarter: 2005Q1

REPORT INFORMATION
  Report Type: 
  Country: None (occurrence: None)
  Receive Date: 20050126
  Receipt Date: 20050111
  Transmission Date: 20050727
  Serious: Yes (Death, Hospitalization)
  Sender: FDA-Public Use
  Company Number: ENT 2004-0080

PATIENT
  Sex: Male

DRUGS (2)
  1. COMTAN [Suspect]
     Indication: PARKINSON'S DISEASE
     Dosage: ORAL
     Route: 048
  2. ARICEPT [Concomitant]

REACTIONS (7)
  - APATHY [None]
  - APHAGIA [None]
  - CEREBROVASCULAR ACCIDENT [None]
  - COMA [None]
  - DEMENTIA [None]
  - DYSPHAGIA [None]
  - PNEUMONIA [None]
